FAERS Safety Report 9269082 (Version 3)
Quarter: 2013Q4

REPORT INFORMATION
  Report Type: Spontaneous
  Country: US (occurrence: US)
  Receive Date: 20130503
  Receipt Date: 20131218
  Transmission Date: 20140711
  Serious: No
  Sender: FDA-Public Use
  Company Number: US-009507513-1304USA017803

PATIENT
  Age: 61 Year
  Sex: Male

DRUGS (5)
  1. DULERA [Suspect]
     Indication: CHRONIC OBSTRUCTIVE PULMONARY DISEASE
     Dosage: 200MCG/5MCG, 2 INHALATION TWICE A DAY
     Route: 055
     Dates: start: 201104
  2. DULERA [Suspect]
     Indication: BACTERIAL INFECTION
  3. DULERA [Suspect]
     Indication: BRONCHITIS
  4. SPIRIVA [Concomitant]
  5. VENTOLIN (ALBUTEROL SULFATE) [Concomitant]
     Dosage: UNK

REACTIONS (5)
  - Cough [Not Recovered/Not Resolved]
  - Dyspnoea [Not Recovered/Not Resolved]
  - Drug effect decreased [Not Recovered/Not Resolved]
  - Product container issue [Unknown]
  - Drug dose omission [Unknown]
